FAERS Safety Report 5596340-3 (Version None)
Quarter: 2008Q1

REPORT INFORMATION
  Report Type: 
  Country: None (occurrence: None)
  Receive Date: 20080118
  Receipt Date: 20071227
  Transmission Date: 20080703
  Serious: Yes (Hospitalization)
  Sender: FDA-Public Use
  Company Number: JP-MERCK-0712USA07980

PATIENT
  Age: 16 Year
  Sex: Female

DRUGS (3)
  1. MAXALT-MLT [Suspect]
     Indication: MIGRAINE
     Route: 048
     Dates: start: 20071015, end: 20071207
  2. MIGSIS [Concomitant]
     Route: 048
     Dates: start: 20070927, end: 20071109
  3. MIGSIS [Concomitant]
     Route: 048
     Dates: start: 20071110, end: 20071206

REACTIONS (2)
  - ALTERED STATE OF CONSCIOUSNESS [None]
  - CONVULSION [None]
